FAERS Safety Report 17596014 (Version 20)
Quarter: 2025Q4

REPORT INFORMATION
  Report Type: Spontaneous
  Country: JP (occurrence: JP)
  Receive Date: 20200330
  Receipt Date: 20251202
  Transmission Date: 20260119
  Serious: Yes (Hospitalization, Other)
  Sender: BRISTOL-MYERS SQUIBB COMPANY
  Company Number: JP-BRISTOL-MYERS SQUIBB COMPANY-BMS-2020-025938

PATIENT
  Age: 64 Year
  Sex: Male

DRUGS (14)
  1. YERVOY [Suspect]
     Active Substance: IPILIMUMAB
     Indication: Metastatic renal cell carcinoma
     Route: 041
     Dates: start: 20190201, end: 20190201
  2. YERVOY [Suspect]
     Active Substance: IPILIMUMAB
     Route: 041
     Dates: start: 20190222, end: 20190222
  3. YERVOY [Suspect]
     Active Substance: IPILIMUMAB
     Route: 041
     Dates: start: 20190315, end: 20190315
  4. OPDIVO [Suspect]
     Active Substance: NIVOLUMAB
     Indication: Metastatic renal cell carcinoma
     Route: 041
     Dates: start: 20190201, end: 20190201
  5. OPDIVO [Suspect]
     Active Substance: NIVOLUMAB
     Route: 041
     Dates: start: 20190222, end: 20190222
  6. OPDIVO [Suspect]
     Active Substance: NIVOLUMAB
     Route: 041
     Dates: start: 20190315, end: 20190315
  7. SUTENT [Suspect]
     Active Substance: SUNITINIB MALATE
     Indication: Metastatic renal cell carcinoma
     Route: 048
  8. SUTENT [Suspect]
     Active Substance: SUNITINIB MALATE
     Route: 048
     Dates: start: 20190821, end: 20200106
  9. SUTENT [Suspect]
     Active Substance: SUNITINIB MALATE
     Route: 048
  10. CEFAZOLIN SODIUM [Concomitant]
     Active Substance: CEFAZOLIN SODIUM
     Indication: Product used for unknown indication
  11. PIPERACILLIN SODIUM\TAZOBACTAM SODIUM [Concomitant]
     Active Substance: PIPERACILLIN SODIUM\TAZOBACTAM SODIUM
     Indication: Product used for unknown indication
     Route: 041
  12. UNSPECIFIED INGREDIENT [Concomitant]
     Active Substance: UNSPECIFIED INGREDIENT
     Indication: Product used for unknown indication
     Route: 041
  13. BETAMETHASONE [Concomitant]
     Active Substance: BETAMETHASONE
     Indication: Metastases to central nervous system
     Dosage: 2 MG, EVERYDAY
     Dates: start: 201907, end: 202002
  14. BETAMETHASONE [Concomitant]
     Active Substance: BETAMETHASONE
     Indication: Brain oedema

REACTIONS (14)
  - Secondary adrenocortical insufficiency [Recovered/Resolved]
  - Pyrexia [Unknown]
  - Malaise [Unknown]
  - Impetigo [Unknown]
  - Renal impairment [Unknown]
  - Brain oedema [Unknown]
  - Hypothyroidism [Recovering/Resolving]
  - Hypothalamo-pituitary disorder [Unknown]
  - Hyperthyroidism [Unknown]
  - Postoperative wound infection [Unknown]
  - Hypopituitarism [Unknown]
  - Thyroiditis [Recovering/Resolving]
  - Hepatic function abnormal [Unknown]
  - Urticaria [Unknown]

NARRATIVE: CASE EVENT DATE: 20190301
